FAERS Safety Report 11878634 (Version 1)
Quarter: 2015Q4

REPORT INFORMATION
  Report Type: Spontaneous
  Country: GB (occurrence: GB)
  Receive Date: 20151230
  Receipt Date: 20151230
  Transmission Date: 20160305
  Serious: Yes (Other)
  Sender: FDA-Public Use
  Company Number: GB-TEVA-621519ISR

PATIENT
  Age: 72 Year
  Sex: Male

DRUGS (3)
  1. HEPARIN [Suspect]
     Active Substance: HEPARIN SODIUM
     Route: 065
  2. DIAZEPAM. [Suspect]
     Active Substance: DIAZEPAM
     Route: 065
  3. VISIPAQUE [Suspect]
     Active Substance: IODIXANOL
     Route: 065

REACTIONS (2)
  - Brain stem infarction [Unknown]
  - Anaphylactic reaction [Unknown]
